FAERS Safety Report 20497528 (Version 1)
Quarter: 2022Q1

REPORT INFORMATION
  Report Type: Spontaneous
  Country: TW (occurrence: TW)
  Receive Date: 20220221
  Receipt Date: 20220221
  Transmission Date: 20220423
  Serious: Yes (Other)
  Sender: FDA-Public Use
  Company Number: TW-ALXN-A202202380

PATIENT
  Age: 41 Year
  Sex: Male

DRUGS (1)
  1. SOLIRIS [Suspect]
     Active Substance: ECULIZUMAB
     Indication: Paroxysmal nocturnal haemoglobinuria
     Dosage: 900 MG, UNK
     Route: 065
     Dates: start: 20141129

REACTIONS (5)
  - Hepatic cirrhosis [Unknown]
  - Hepatitis B [Unknown]
  - Platelet count decreased [Unknown]
  - Splenomegaly [Unknown]
  - Anaemia [Unknown]
